FAERS Safety Report 10462588 (Version 2)
Quarter: 2014Q3

REPORT INFORMATION
  Report Type: Report from Study
  Country: FR (occurrence: FR)
  Receive Date: 20140918
  Receipt Date: 20140918
  Transmission Date: 20150326
  Serious: Yes (Hospitalization)
  Sender: FDA-Public Use
  Company Number: FR-ABBVIE-12P-056-0990062-00

PATIENT
  Sex: Female

DRUGS (4)
  1. SOLUPRED [Concomitant]
     Active Substance: PREDNISOLONE
     Dates: start: 20100414
  2. HUMIRA [Suspect]
     Active Substance: ADALIMUMAB
     Indication: CROHN^S DISEASE
     Dosage: INDUCTION: 160MG (BASELINE)/80 MG (WEEK 2)
     Route: 058
     Dates: start: 20080609, end: 20090316
  3. HUMIRA [Suspect]
     Active Substance: ADALIMUMAB
     Route: 058
     Dates: start: 20110115, end: 20110401
  4. SOLUPRED [Concomitant]
     Active Substance: PREDNISOLONE
     Indication: CROHN^S DISEASE
     Dates: start: 200905, end: 20100414

REACTIONS (1)
  - Intestinal anastomosis complication [Unknown]

NARRATIVE: CASE EVENT DATE: 20120625
